FAERS Safety Report 13886406 (Version 2)
Quarter: 2018Q1

REPORT INFORMATION
  Report Type: Report from Study
  Country: US (occurrence: US)
  Receive Date: 20170821
  Receipt Date: 20180110
  Transmission Date: 20180508
  Serious: Yes (Hospitalization, Other)
  Sender: FDA-Public Use
  Company Number: US-JNJFOC-20170816171

PATIENT
  Age: 70 Year
  Sex: Female

DRUGS (11)
  1. COLCHICINE. [Concomitant]
     Active Substance: COLCHICINE
  2. CELEXA [Concomitant]
     Active Substance: CITALOPRAM HYDROBROMIDE
  3. IMBRUVICA [Suspect]
     Active Substance: IBRUTINIB
     Indication: CHRONIC LYMPHOCYTIC LEUKAEMIA
     Route: 048
     Dates: start: 20161130, end: 201712
  4. LEVAQUIN [Concomitant]
     Active Substance: LEVOFLOXACIN
  5. TRADJENTA [Concomitant]
     Active Substance: LINAGLIPTIN
  6. MOBIC [Concomitant]
     Active Substance: MELOXICAM
  7. LASIX [Concomitant]
     Active Substance: FUROSEMIDE
  8. INDOMETHACIN. [Concomitant]
     Active Substance: INDOMETHACIN
  9. SOTALOL. [Concomitant]
     Active Substance: SOTALOL
  10. GLIPIZIDE. [Concomitant]
     Active Substance: GLIPIZIDE
  11. ALLOPURINOL. [Concomitant]
     Active Substance: ALLOPURINOL

REACTIONS (5)
  - Fall [Not Recovered/Not Resolved]
  - Concussion [Unknown]
  - Contusion [Unknown]
  - Cataract [Unknown]
  - Tooth fracture [Unknown]

NARRATIVE: CASE EVENT DATE: 20180102
